FAERS Safety Report 4986671-X (Version None)
Quarter: 2006Q2

REPORT INFORMATION
  Report Type: 
  Country: None (occurrence: None)
  Receive Date: 20060428
  Receipt Date: 20050713
  Transmission Date: 20061013
  Serious: Yes (Hospitalization)
  Sender: FDA-Public Use
  Company Number: US-MERCK-0507USA01755

PATIENT
  Age: 73 Year
  Sex: Male
  Weight: 86 kg

DRUGS (12)
  1. VIOXX [Suspect]
     Indication: PAIN IN EXTREMITY
     Route: 048
     Dates: start: 20030201, end: 20030815
  2. ECOTRIN [Concomitant]
     Route: 065
  3. EFFEXOR [Concomitant]
     Route: 065
  4. LOPRESSOR [Concomitant]
     Route: 065
  5. COMBIVENT [Concomitant]
     Route: 065
  6. K-DUR 10 [Concomitant]
     Route: 065
  7. LAMISIL [Concomitant]
     Route: 065
  8. NEURONTIN [Concomitant]
     Route: 065
  9. ZESTRIL [Concomitant]
     Route: 065
  10. VIAGRA [Concomitant]
     Route: 065
  11. HYDROCHLOROTHIAZIDE [Concomitant]
     Route: 065
  12. ADVAIR DISKUS 100/50 [Concomitant]
     Route: 065

REACTIONS (16)
  - ANAEMIA [None]
  - ANXIETY [None]
  - ASTHENIA [None]
  - BACK PAIN [None]
  - BRONCHITIS CHRONIC [None]
  - CARDIAC FAILURE [None]
  - CHRONIC OBSTRUCTIVE PULMONARY DISEASE [None]
  - CORONARY ARTERY DISEASE [None]
  - DYSPNOEA [None]
  - EMPHYSEMA [None]
  - INSOMNIA [None]
  - LEUKOCYTOSIS [None]
  - LUNG NEOPLASM [None]
  - MYOCARDIAL INFARCTION [None]
  - PNEUMONIA [None]
  - VENTRICULAR DYSFUNCTION [None]
